FAERS Safety Report 14101575 (Version 2)
Quarter: 2017Q4

REPORT INFORMATION
  Report Type: Spontaneous
  Country: US (occurrence: US)
  Receive Date: 20171018
  Receipt Date: 20171123
  Transmission Date: 20180321
  Serious: No
  Sender: FDA-Public Use
  Company Number: US-PFIZER INC-2017445596

PATIENT
  Age: 8 Month
  Sex: Male
  Weight: 11.34 kg

DRUGS (2)
  1. ENFAMIL TRI VI SOL WITH IRON [Concomitant]
     Indication: SUPPLEMENTATION THERAPY
     Dosage: JUST UNDER 1ML A DAY BY MOUTH
     Route: 048
  2. CHILDRENS ADVIL [Suspect]
     Active Substance: IBUPROFEN
     Indication: CANDIDA INFECTION
     Dosage: 1.5ML DOSE BY MOUTH
     Route: 048
     Dates: start: 2017

REACTIONS (4)
  - Product taste abnormal [Recovered/Resolved]
  - Poor quality drug administered [Recovered/Resolved]
  - Product physical issue [Recovered/Resolved]
  - Dysgeusia [Recovered/Resolved]

NARRATIVE: CASE EVENT DATE: 20171007
